FAERS Safety Report 4793812-6 (Version None)
Quarter: 2005Q4

REPORT INFORMATION
  Report Type: 
  Country: None (occurrence: None)
  Receive Date: 20051006
  Receipt Date: 20050923
  Transmission Date: 20060501
  Serious: Yes (Hospitalization, Other)
  Sender: FDA-Public Use
  Company Number: KII-2005-0018770

PATIENT
  Age: 46 Year
  Sex: Female

DRUGS (12)
  1. OXYCODONE HCL [Suspect]
     Indication: INTENTIONAL DRUG MISUSE
     Dosage: ORAL
     Route: 048
  2. LYSERGIDE (LYSERGIDE) [Suspect]
     Indication: INTENTIONAL DRUG MISUSE
  3. ETHANOL(ETHANOL) [Suspect]
     Indication: DRUG USE FOR UNKNOWN INDICATION
  4. VALPROIC ACID [Concomitant]
  5. BENZODIAZEPINE DERIVATIVES [Concomitant]
  6. SERUMLIPIDREDUCING AGENTS [Concomitant]
  7. SSRI [Concomitant]
  8. ESTROGENS [Concomitant]
  9. PROTON PUMP INHIBITOR [Concomitant]
  10. OTHER ANALGESICS AND ANTIPYRETICS [Concomitant]
  11. PROPRANOLOL [Concomitant]
  12. PIROXICAM [Concomitant]

REACTIONS (21)
  - ALANINE AMINOTRANSFERASE INCREASED [None]
  - ALCOHOL USE [None]
  - APNOEA [None]
  - ASPARTATE AMINOTRANSFERASE INCREASED [None]
  - BLOOD PH DECREASED [None]
  - BLOOD POTASSIUM INCREASED [None]
  - COMA [None]
  - CONFUSIONAL STATE [None]
  - DRUG ABUSER [None]
  - DYSARTHRIA [None]
  - DYSPNOEA [None]
  - INTENTIONAL DRUG MISUSE [None]
  - MENINGITIS [None]
  - MENTAL STATUS CHANGES [None]
  - OVERDOSE [None]
  - PNEUMONIA ASPIRATION [None]
  - PYREXIA [None]
  - RHABDOMYOLYSIS [None]
  - SUICIDE ATTEMPT [None]
  - URINE OUTPUT DECREASED [None]
  - WRONG DRUG ADMINISTERED [None]
